FAERS Safety Report 8910289 (Version 7)
Quarter: 2013Q4

REPORT INFORMATION
  Report Type: Spontaneous
  Country: US (occurrence: US)
  Receive Date: 20121115
  Receipt Date: 20131016
  Transmission Date: 20140711
  Serious: Yes (Hospitalization, Other)
  Sender: FDA-Public Use
  Company Number: US-009507513-1211USA002923

PATIENT
  Sex: Female

DRUGS (7)
  1. PEGINTRON [Suspect]
     Indication: HEPATITIS C
     Dosage: UNK, REDIPEN
     Route: 058
     Dates: start: 20121019, end: 20130523
  2. PEGINTRON [Suspect]
     Dosage: 0.5 UNK, UNK
  3. PEGINTRON [Suspect]
     Dosage: 0.4 UNK, UNK
  4. REBETOL [Suspect]
     Indication: HEPATITIS C
     Dosage: UNK
     Route: 048
     Dates: start: 20121019, end: 20130523
  5. REBETOL [Suspect]
     Dosage: 2 DF, BID(2 TWICE A DAY)
  6. REBETOL [Suspect]
     Dosage: 1 DF, BID (ONE TWICE A DAY)
  7. VICTRELIS [Suspect]
     Indication: HEPATITIS C
     Dosage: UNK
     Route: 048
     Dates: start: 20121116, end: 20130523

REACTIONS (27)
  - Cardiac failure congestive [Unknown]
  - Fatigue [Unknown]
  - Oropharyngeal pain [Unknown]
  - White blood cell count decreased [Unknown]
  - Monocyte count increased [Unknown]
  - Neutrophil count decreased [Unknown]
  - Dysgeusia [Unknown]
  - Chills [Unknown]
  - Dyspnoea [Unknown]
  - Myalgia [Unknown]
  - Fatigue [Unknown]
  - Dyspnoea [Unknown]
  - White blood cell count decreased [Unknown]
  - Leukopenia [Unknown]
  - Dyspnoea [Unknown]
  - Conjunctivitis [Unknown]
  - White blood cell count decreased [Unknown]
  - Leukopenia [Unknown]
  - Respiratory disorder [Unknown]
  - Vomiting [Unknown]
  - Cough [Unknown]
  - Dyspnoea [Unknown]
  - Red blood cell count decreased [Unknown]
  - White blood cell count decreased [Unknown]
  - Haemoglobin decreased [Unknown]
  - Anaemia [Unknown]
  - Haemoglobin decreased [Unknown]
